FAERS Safety Report 8879173 (Version 1)
Quarter: 2012Q4

REPORT INFORMATION
  Report Type: Spontaneous
  Country: NL (occurrence: None)
  Receive Date: 20121026
  Receipt Date: 20121026
  Transmission Date: 20130627
  Serious: Yes (Death, Other)
  Sender: FDA-Public Use
  Company Number: VAL_00937_2012

PATIENT
  Age: 11 Year
  Sex: Male

DRUGS (2)
  1. METOPROLOL [Suspect]
     Indication: LONG QT SYNDROME
  2. PROPANOLOL /00030001/ [Concomitant]

REACTIONS (2)
  - Syncope [None]
  - Cardiac arrest [None]
